FAERS Safety Report 21406675 (Version 1)
Quarter: 2022Q4

REPORT INFORMATION
  Report Type: Spontaneous
  Country: JP (occurrence: JP)
  Receive Date: 20221004
  Receipt Date: 20221004
  Transmission Date: 20230113
  Serious: Yes (Hospitalization)
  Sender: FDA-Public Use
  Company Number: JP-VALIDUS PHARMACEUTICALS LLC-JP-VDP-2022-015746

PATIENT

DRUGS (5)
  1. CEFOTAXIME SODIUM [Suspect]
     Active Substance: CEFOTAXIME SODIUM
     Indication: Cellulitis
     Dosage: 1 GRAM, Q8H
     Route: 042
     Dates: start: 20220628, end: 20220706
  2. CLINDAMYCIN PHOSPHATE [Suspect]
     Active Substance: CLINDAMYCIN PHOSPHATE
     Indication: Cellulitis
     Dosage: 250 MILLIGRAM, Q8H
     Route: 042
     Dates: start: 20220628, end: 20220706
  3. CARBOCYSTEINE [Concomitant]
     Active Substance: CARBOCYSTEINE
     Indication: Cellulitis
     Dosage: UNK
     Route: 065
     Dates: start: 20220628
  4. AMBROXOL HYDROCHLORIDE [Concomitant]
     Active Substance: AMBROXOL HYDROCHLORIDE
     Indication: Cellulitis
     Dosage: UNK
     Route: 065
     Dates: start: 20220628
  5. SODIUM GUALENATE MONOHYDRATE [Concomitant]
     Active Substance: SODIUM GUALENATE MONOHYDRATE
     Indication: Antiinflammatory therapy
     Dosage: UNK
     Route: 065
     Dates: start: 20220701

REACTIONS (1)
  - Drug eruption [Recovering/Resolving]
